FAERS Safety Report 25631737 (Version 1)
Quarter: 2025Q3

REPORT INFORMATION
  Report Type: Report from Study
  Country: US (occurrence: US)
  Receive Date: 20250801
  Receipt Date: 20250801
  Transmission Date: 20251021
  Serious: Yes (Other)
  Sender: UCB
  Company Number: US-UCBSA-2025005177

PATIENT
  Sex: Male
  Weight: 46.3 kg

DRUGS (24)
  1. FINTEPLA [Suspect]
     Active Substance: FENFLURAMINE
     Indication: Lennox-Gastaut syndrome
     Dosage: 0.3 MILLILITER, ONCE DAILY (QD)
     Route: 048
     Dates: start: 20241028
  2. FINTEPLA [Suspect]
     Active Substance: FENFLURAMINE
     Route: 048
     Dates: start: 202502
  3. FINTEPLA [Suspect]
     Active Substance: FENFLURAMINE
     Dosage: 0.4 MILLILITER, 2X/DAY (BID)
     Route: 048
  4. FINTEPLA [Suspect]
     Active Substance: FENFLURAMINE
     Dosage: 0.6 MILLILITER, 2X/DAY (BID)
     Route: 048
  5. FINTEPLA [Suspect]
     Active Substance: FENFLURAMINE
     Dosage: 0.6 MILLILITER, 2X/DAY (BID)
     Route: 048
  6. FINTEPLA [Suspect]
     Active Substance: FENFLURAMINE
     Dosage: 0.6 MILLILITER, 2X/DAY (BID)
     Route: 048
  7. EPIDIOLEX [Suspect]
     Active Substance: CANNABIDIOL
     Indication: Product used for unknown indication
     Dosage: 2 MILLILITER, 3X/DAY (TID)
     Route: 048
     Dates: start: 201905
  8. EPIDIOLEX [Suspect]
     Active Substance: CANNABIDIOL
     Route: 048
  9. DEPAKOTE [Suspect]
     Active Substance: DIVALPROEX SODIUM
     Indication: Epilepsy
     Dosage: 375 MILLIGRAM, 2X/DAY (BID)
     Dates: start: 19981201
  10. CANNABIDIOL [Concomitant]
     Active Substance: CANNABIDIOL
     Indication: Epilepsy
     Dosage: 200 MILLIGRAM, 3X/DAY (TID)
     Dates: start: 20190322
  11. LAMICTAL [Concomitant]
     Active Substance: LAMOTRIGINE
     Indication: Epilepsy
     Dosage: 150 MILLIGRAM, 3X/DAY (TID)
     Dates: start: 20180524
  12. TRILEPTAL [Concomitant]
     Active Substance: OXCARBAZEPINE
     Indication: Epilepsy
     Dosage: 750 MILLIGRAM, 3X/DAY (TID)
     Dates: start: 20150528
  13. VITAMIN C [Concomitant]
     Active Substance: ASCORBIC ACID
     Indication: Product used for unknown indication
  14. OSCAL 250+D [Concomitant]
     Indication: Product used for unknown indication
     Route: 048
  15. CALCIUM CITRATE [Concomitant]
     Active Substance: CALCIUM CITRATE
     Indication: Product used for unknown indication
     Dosage: 600 MILLIGRAM, 2X/DAY (BID)
     Route: 048
  16. VITAMIN D3 [Concomitant]
     Active Substance: CHOLECALCIFEROL
     Indication: Product used for unknown indication
     Route: 048
  17. KLONOPIN [Concomitant]
     Active Substance: CLONAZEPAM
     Indication: Product used for unknown indication
  18. PERIACTIN [Concomitant]
     Active Substance: CYPROHEPTADINE HYDROCHLORIDE
     Indication: Product used for unknown indication
     Dosage: 4 MILLIGRAM, 4X/DAY (QID)
  19. ATIVAN [Concomitant]
     Active Substance: LORAZEPAM
     Indication: Agitation
  20. MIRALAX [Concomitant]
     Active Substance: POLYETHYLENE GLYCOL 3350
     Indication: Product used for unknown indication
  21. REMERON [Concomitant]
     Active Substance: MIRTAZAPINE
     Indication: Product used for unknown indication
  22. PRILOSEC [Concomitant]
     Active Substance: OMEPRAZOLE MAGNESIUM
     Indication: Product used for unknown indication
  23. GLYCOLAX [Concomitant]
     Active Substance: POLYETHYLENE GLYCOL 3350
     Indication: Product used for unknown indication
     Dosage: 17 MILLIGRAM, ONCE DAILY (QD)
  24. SIMETHICONE (DIMETHICONE) [Concomitant]
     Active Substance: DIMETHICONE
     Indication: Product used for unknown indication

REACTIONS (12)
  - Seizure cluster [Not Recovered/Not Resolved]
  - Myoclonic epilepsy [Recovered/Resolved]
  - Crying [Not Recovered/Not Resolved]
  - Decreased appetite [Not Recovered/Not Resolved]
  - Dilatation atrial [Recovered/Resolved]
  - Ejection fraction decreased [Unknown]
  - Cyanosis [Unknown]
  - Somnolence [Unknown]
  - Balance disorder [Recovering/Resolving]
  - Fatigue [Unknown]
  - Off label use [Unknown]
  - Product use issue [Unknown]

NARRATIVE: CASE EVENT DATE: 20250101
